FAERS Safety Report 11889738 (Version 2)
Quarter: 2016Q2

REPORT INFORMATION
  Report Type: Spontaneous
  Country: ES (occurrence: ES)
  Receive Date: 20160105
  Receipt Date: 20160415
  Transmission Date: 20160815
  Serious: Yes (Death, Life-Threatening, Hospitalization)
  Sender: FDA-Public Use
  Company Number: PHHY2015ES172074

PATIENT
  Age: 44 Year
  Sex: Male

DRUGS (9)
  1. CLOZAPINE. [Interacting]
     Active Substance: CLOZAPINE
     Dosage: 400 MG, QD
     Route: 065
  2. RISPERIDONE. [Suspect]
     Active Substance: RISPERIDONE
     Indication: SCHIZOPHRENIA
     Dosage: 9 MG, QD
     Route: 065
  3. ARIPIPRAZOLE. [Interacting]
     Active Substance: ARIPIPRAZOLE
     Dosage: 15 MG, QD
     Route: 065
  4. CLOZAPINE. [Interacting]
     Active Substance: CLOZAPINE
     Dosage: 425 MG, QD
     Route: 065
  5. CLOZAPINE. [Interacting]
     Active Substance: CLOZAPINE
     Dosage: 500 MG, QD (BETWEEN 425 AND 500 MG/DAY)
     Route: 065
  6. CLOZAPINE. [Interacting]
     Active Substance: CLOZAPINE
     Indication: SCHIZOPHRENIA
     Dosage: 400 MG, QD
     Route: 065
     Dates: start: 2004
  7. ARIPIPRAZOLE. [Interacting]
     Active Substance: ARIPIPRAZOLE
     Dosage: 30 MG, QD
     Route: 065
  8. ARIPIPRAZOLE. [Interacting]
     Active Substance: ARIPIPRAZOLE
     Indication: SCHIZOPHRENIA
     Dosage: 20 MG, QD
     Route: 065
  9. OLANZAPINE. [Suspect]
     Active Substance: OLANZAPINE
     Indication: SCHIZOPHRENIA
     Dosage: 40 MG, QD
     Route: 065

REACTIONS (7)
  - Extrapyramidal disorder [Unknown]
  - Antipsychotic drug level increased [Unknown]
  - Completed suicide [Fatal]
  - Suicide attempt [Unknown]
  - Hallucination, auditory [Unknown]
  - Persecutory delusion [Unknown]
  - Drug ineffective [Unknown]

NARRATIVE: CASE EVENT DATE: 2009
